FAERS Safety Report 6448885-1 (Version None)
Quarter: 2009Q4

REPORT INFORMATION
  Report Type: 
  Country: None (occurrence: None)
  Receive Date: 20091120
  Receipt Date: 20091109
  Transmission Date: 20100525
  Serious: Yes (Other)
  Sender: FDA-Public Use
  Company Number: JP-PFIZER INC-2009283012

PATIENT
  Age: 70 Year
  Sex: Female

DRUGS (8)
  1. CHAMPIX [Suspect]
     Indication: SMOKING CESSATION THERAPY
     Dosage: 0.5 MG, UNK
     Route: 048
     Dates: start: 20090928, end: 20090930
  2. CHAMPIX [Suspect]
     Dosage: 1.0 MG, UNK
     Route: 048
     Dates: start: 20091001, end: 20091004
  3. CHAMPIX [Suspect]
     Dosage: 2.0 MG, UNK
     Route: 048
     Dates: start: 20091005, end: 20091008
  4. DOGMATYL [Concomitant]
     Route: 048
  5. SOLANAX [Concomitant]
     Route: 048
  6. TOLEDOMIN [Concomitant]
     Route: 048
  7. ROHYPNOL [Concomitant]
  8. DESYREL [Concomitant]
     Route: 048

REACTIONS (1)
  - ILEUS [None]
